FAERS Safety Report 10273710 (Version 2)
Quarter: 2014Q3

REPORT INFORMATION
  Report Type: Spontaneous
  Country: US (occurrence: US)
  Receive Date: 20140702
  Receipt Date: 20140725
  Transmission Date: 20150326
  Serious: Yes (Hospitalization, Other)
  Sender: FDA-Public Use
  Company Number: US-BAYER-2014-094390

PATIENT
  Age: 43 Year
  Sex: Female

DRUGS (14)
  1. IBUPROFEN. [Suspect]
     Active Substance: IBUPROFEN
     Route: 048
  2. MONTELUKAST [Concomitant]
     Active Substance: MONTELUKAST SODIUM
     Indication: ASTHMA
     Dosage: DAILY DOSE 10 MG
  3. ACETYLSALICYLIC ACID({=100 MG) [Suspect]
     Active Substance: ASPIRIN
     Indication: IMMUNE TOLERANCE INDUCTION
     Dosage: 81 MG, UNK
     Route: 048
     Dates: start: 201304
  4. ACETYLSALICYLIC ACID({=100 MG) [Suspect]
     Active Substance: ASPIRIN
     Indication: IMMUNE TOLERANCE INDUCTION
     Dosage: 81 MG, ONCE
     Route: 048
     Dates: start: 201404
  5. IBUPROFEN. [Suspect]
     Active Substance: IBUPROFEN
     Dosage: 200 MG, BID
     Route: 048
     Dates: start: 201305
  6. ACETYLSALICYLIC ACID({=100 MG) [Suspect]
     Active Substance: ASPIRIN
     Indication: IMMUNE TOLERANCE INDUCTION
     Dosage: 324 MG, BID
     Route: 048
     Dates: start: 201404
  7. TIOTROPIUM [Concomitant]
     Active Substance: TIOTROPIUM
     Indication: ASTHMA
     Dosage: DAILY DOSE 18 ?G
     Route: 055
  8. IBUPROFEN. [Suspect]
     Active Substance: IBUPROFEN
     Dosage: 50 MG, ONCE
     Route: 048
     Dates: start: 20131121
  9. ACETYLSALICYLIC ACID({=100 MG) [Suspect]
     Active Substance: ASPIRIN
     Indication: IMMUNE TOLERANCE INDUCTION
     Dosage: 40 MG, ONCE
     Route: 048
     Dates: start: 20140331
  10. ACETYLSALICYLIC ACID({=100 MG) [Suspect]
     Active Substance: ASPIRIN
     Indication: IMMUNE TOLERANCE INDUCTION
     Dosage: 162 MG, ONCE
     Route: 048
     Dates: start: 201404
  11. ACETYLSALICYLIC ACID({=100 MG) [Suspect]
     Active Substance: ASPIRIN
     Indication: IMMUNE TOLERANCE INDUCTION
     Dosage: 324 MG, ONCE
     Route: 048
     Dates: start: 201404
  12. ACETYLSALICYLIC ACID({=100 MG) [Suspect]
     Active Substance: ASPIRIN
     Indication: IMMUNE TOLERANCE INDUCTION
     Dosage: 40 MG, ONCE
     Route: 048
     Dates: start: 201404
  13. ALBUTEROL. [Concomitant]
     Active Substance: ALBUTEROL
     Indication: ASTHMA
     Dosage: METERED DOSE INHALER
     Route: 055
  14. FLUTICASONE PROPIONATE W/SALMETEROL [Concomitant]
     Active Substance: FLUTICASONE PROPIONATE\SALMETEROL XINAFOATE
     Indication: ASTHMA
     Dosage: UNK UNK, BID
     Route: 055

REACTIONS (18)
  - Lip swelling [None]
  - Pruritus generalised [Recovered/Resolved]
  - Headache [None]
  - Cough [None]
  - Respiratory distress [None]
  - Nasal polyps [None]
  - Rash [None]
  - Rash [None]
  - Lip swelling [None]
  - Pain in extremity [None]
  - Bronchospasm [Recovered/Resolved]
  - Nasal obstruction [Recovered/Resolved]
  - Pruritus [None]
  - Cough [None]
  - Swelling face [None]
  - Hypoxia [None]
  - Asthma [None]
  - Respiratory distress [None]

NARRATIVE: CASE EVENT DATE: 2009
